FAERS Safety Report 7268512-3 (Version None)
Quarter: 2010Q4

REPORT INFORMATION
  Report Type: 
  Country: None (occurrence: None)
  Receive Date: 20101206
  Receipt Date: 20101011
  Transmission Date: 20110411
  Serious: No
  Sender: FDA-Public Use
  Company Number: 2010SP054407

PATIENT
  Age: 54 Year
  Sex: Female

DRUGS (6)
  1. SAPHRIS [Suspect]
     Indication: MAJOR DEPRESSION
     Dosage: 10 MG;QD;SL
     Route: 060
     Dates: start: 20100901
  2. PRILOSEC [Concomitant]
  3. SEROQUEL [Concomitant]
  4. TRILIPIX [Concomitant]
  5. ATIVAN [Concomitant]
  6. EFFEXOR [Concomitant]

REACTIONS (2)
  - DYSPEPSIA [None]
  - INAPPROPRIATE SCHEDULE OF DRUG ADMINISTRATION [None]
